FAERS Safety Report 5386639-8 (Version None)
Quarter: 2007Q3

REPORT INFORMATION
  Report Type: 
  Country: None (occurrence: None)
  Receive Date: 20070713
  Receipt Date: 20070705
  Transmission Date: 20080115
  Serious: Yes (Hospitalization, Other)
  Sender: FDA-Public Use
  Company Number: US-AVENTIS-200716163GDDC

PATIENT
  Age: 60 Year
  Sex: Male

DRUGS (18)
  1. LANTUS [Suspect]
     Route: 058
     Dates: start: 20070112
  2. LANTUS [Suspect]
  3. METFORMIN HCL [Suspect]
     Dates: end: 20070628
  4. CAPTOPRIL [Suspect]
     Indication: HYPERTENSION
     Route: 048
     Dates: start: 19920101, end: 20070705
  5. CAPTOPRIL [Suspect]
     Indication: CORONARY ARTERY DISEASE
     Route: 048
     Dates: start: 19920101, end: 20070705
  6. ALLOPURINOL [Concomitant]
     Indication: GOUT
     Route: 048
     Dates: start: 19900101
  7. NORVASC [Concomitant]
     Indication: HYPERTENSION
     Route: 048
     Dates: start: 19900101, end: 20070208
  8. NORVASC [Concomitant]
     Indication: CORONARY ARTERY DISEASE
     Route: 048
     Dates: start: 19900101, end: 20070208
  9. PLAVIX [Concomitant]
     Indication: CORONARY ARTERY DISEASE
     Route: 048
     Dates: start: 20050617
  10. ISOSORB [Concomitant]
     Indication: CORONARY ARTERY DISEASE
     Route: 048
     Dates: start: 20050617
  11. LIPITOR [Concomitant]
     Route: 048
     Dates: start: 20050921, end: 20070208
  12. TOPROL-XL [Concomitant]
     Indication: HYPERTENSION
     Route: 048
     Dates: start: 20050617
  13. MULTI-VITAMINS [Concomitant]
     Dosage: DOSE QUANTITY: 1
     Route: 048
     Dates: start: 20000101, end: 20070205
  14. ASPIRIN [Concomitant]
     Route: 048
     Dates: start: 20050512
  15. PAXIL [Concomitant]
     Indication: ANXIETY
     Route: 048
     Dates: start: 20000101
  16. CADUET [Concomitant]
     Indication: HYPERTENSION
     Dosage: DOSE: 5/20
     Route: 048
     Dates: start: 20070209
  17. CADUET [Concomitant]
     Dosage: DOSE: 5/20
     Route: 048
     Dates: start: 20070209
  18. LISINOPRIL [Concomitant]
     Indication: CORONARY ARTERY DISEASE
     Route: 048
     Dates: start: 20070707

REACTIONS (5)
  - BACK PAIN [None]
  - DYSPNOEA [None]
  - FATIGUE [None]
  - NECK PAIN [None]
  - RENAL FAILURE ACUTE [None]
